FAERS Safety Report 21242993 (Version 1)
Quarter: 2022Q3

REPORT INFORMATION
  Report Type: Report from Study
  Country: US (occurrence: US)
  Receive Date: 20220823
  Receipt Date: 20220823
  Transmission Date: 20221026
  Serious: Yes (Other)
  Sender: FDA-Public Use
  Company Number: US-ABBVIE-22K-163-4512928-00

PATIENT
  Sex: Female

DRUGS (2)
  1. HUMIRA [Suspect]
     Active Substance: ADALIMUMAB
     Indication: Hidradenitis
     Dosage: CITRATE FREE
     Route: 058
  2. JANSSEN COVID-19 VACCINE [Suspect]
     Active Substance: AD26.COV2.S
     Indication: COVID-19 immunisation
     Route: 030

REACTIONS (9)
  - Systemic lupus erythematosus [Not Recovered/Not Resolved]
  - Temperature intolerance [Unknown]
  - Illness [Unknown]
  - Depression [Unknown]
  - Anger [Unknown]
  - Muscle spasms [Unknown]
  - Pain [Unknown]
  - Abdominal discomfort [Unknown]
  - Headache [Unknown]
